FAERS Safety Report 6898398-8 (Version None)
Quarter: 2010Q3

REPORT INFORMATION
  Report Type: 
  Country: None (occurrence: None)
  Receive Date: 20100802
  Receipt Date: 20071002
  Transmission Date: 20110219
  Serious: No
  Sender: FDA-Public Use
  Company Number: US-PFIZER INC-2007045012

PATIENT
  Sex: Female
  Weight: 74.84 kg

DRUGS (1)
  1. LYRICA [Suspect]
     Indication: POST HERPETIC NEURALGIA
     Route: 048
     Dates: start: 20070201, end: 20070501

REACTIONS (6)
  - BALANCE DISORDER [None]
  - BLISTER [None]
  - DIZZINESS [None]
  - PRURITUS [None]
  - SOMNOLENCE [None]
  - VISION BLURRED [None]
